FAERS Safety Report 11769327 (Version 1)
Quarter: 2015Q4

REPORT INFORMATION
  Report Type: Spontaneous
  Country: TR (occurrence: TR)
  Receive Date: 20151123
  Receipt Date: 20151123
  Transmission Date: 20160304
  Serious: Yes (Other)
  Sender: FDA-Public Use
  Company Number: ALCN2015TR007157

PATIENT

DRUGS (8)
  1. MAXIDEX [Suspect]
     Active Substance: DEXAMETHASONE
     Dosage: 1 DF, 5QD
     Route: 047
  2. MAXIDEX [Suspect]
     Active Substance: DEXAMETHASONE
     Indication: POSTOPERATIVE CARE
     Dosage: 1 DF, 7QD
     Route: 047
  3. MAXIDEX [Suspect]
     Active Substance: DEXAMETHASONE
     Dosage: 1 OR 2 TIMES A DAY THEREAFTER
     Route: 047
  4. VIGAMOX [Suspect]
     Active Substance: MOXIFLOXACIN HYDROCHLORIDE
     Dosage: 1 DF, 5QD
     Route: 047
  5. VIGAMOX [Suspect]
     Active Substance: MOXIFLOXACIN HYDROCHLORIDE
     Dosage: 1 DF, QID
     Route: 047
  6. MAXIDEX [Suspect]
     Active Substance: DEXAMETHASONE
     Dosage: 1 DF, QID
     Route: 047
  7. VIGAMOX [Suspect]
     Active Substance: MOXIFLOXACIN HYDROCHLORIDE
     Indication: POSTOPERATIVE CARE
     Dosage: 1 DF, 7QD
     Route: 047
  8. REFRESH                            /00880201/ [Suspect]
     Active Substance: POLYVINYL ALCOHOL\POVIDONE
     Indication: POSTOPERATIVE CARE
     Dosage: 1 DF, Q2H
     Route: 047

REACTIONS (2)
  - Transplant failure [Unknown]
  - Off label use [Unknown]
